FAERS Safety Report 14856454 (Version 1)
Quarter: 2018Q2

REPORT INFORMATION
  Report Type: Spontaneous
  Country: US (occurrence: US)
  Receive Date: 20180507
  Receipt Date: 20180507
  Transmission Date: 20180711
  Serious: No
  Sender: FDA-Public Use
  Company Number: US-ROCHE-2066914

PATIENT
  Sex: Male

DRUGS (6)
  1. FUROSEMIDE. [Concomitant]
     Active Substance: FUROSEMIDE
  2. ESBRIET [Suspect]
     Active Substance: PIRFENIDONE
     Indication: IDIOPATHIC PULMONARY FIBROSIS
     Route: 048
     Dates: start: 20170419
  3. CALCITONIN SALMON. [Concomitant]
     Active Substance: CALCITONIN SALMON
  4. GABAPENTIN. [Concomitant]
     Active Substance: GABAPENTIN
  5. CARVEDILOL. [Concomitant]
     Active Substance: CARVEDILOL
     Route: 065
  6. ECOTRIN [Concomitant]
     Active Substance: ASPIRIN
     Dosage: LOW STRENGTH
     Route: 065

REACTIONS (2)
  - Dysgeusia [Unknown]
  - Hypogeusia [Unknown]
